FAERS Safety Report 6454048-6 (Version None)
Quarter: 2009Q4

REPORT INFORMATION
  Report Type: 
  Country: None (occurrence: None)
  Receive Date: 20091124
  Receipt Date: 20091118
  Transmission Date: 20100525
  Serious: Yes (Congenital Anomaly, Other)
  Sender: FDA-Public Use
  Company Number: B0414861A

PATIENT
  Age: 1 Day
  Sex: Male
  Weight: 3.4 kg

DRUGS (8)
  1. LAMIVUDINE [Suspect]
     Indication: HIV INFECTION
     Dosage: 1200MG PER DAY
     Dates: start: 20040130, end: 20040601
  2. ZIDOVUDINE [Suspect]
     Indication: HIV INFECTION
     Dosage: 600MG PER DAY
     Dates: start: 20040601, end: 20040720
  3. TRUVADA [Suspect]
     Indication: HIV INFECTION
     Dosage: 300MG PER DAY
     Dates: start: 20040601, end: 20040720
  4. KALETRA [Suspect]
     Indication: HIV INFECTION
     Dosage: 600MG PER DAY
     Dates: start: 20040601
  5. CRIXIVAN [Suspect]
     Indication: DRUG USE FOR UNKNOWN INDICATION
     Dosage: 600MG PER DAY
     Dates: start: 20040601, end: 20040720
  6. VIREAD [Suspect]
     Indication: HIV INFECTION
     Dosage: 300MG PER DAY
     Dates: start: 20040606, end: 20040910
  7. NELFINAVIR MESYLATE [Suspect]
     Indication: HIV INFECTION
     Dosage: 2500MG PER DAY
     Dates: start: 20040130, end: 20040601
  8. FOLIC ACID [Concomitant]

REACTIONS (9)
  - ABDOMINAL DISTENSION [None]
  - ABDOMINAL HERNIA [None]
  - CARDIAC MURMUR [None]
  - CONGENITAL ANOMALY [None]
  - CRYPTORCHISM [None]
  - DRUG EXPOSURE DURING PREGNANCY [None]
  - EXOMPHALOS [None]
  - GASTROSCHISIS [None]
  - MATERNAL DRUGS AFFECTING FOETUS [None]
